FAERS Safety Report 6572894-5 (Version None)
Quarter: 2010Q1

REPORT INFORMATION
  Report Type: 
  Country: None (occurrence: None)
  Receive Date: 20100207
  Receipt Date: 20100129
  Transmission Date: 20100710
  Serious: Yes (Disabling)
  Sender: FDA-Public Use
  Company Number: JP-MERCK-0912USA01658

PATIENT
  Age: 69 Year
  Sex: Female

DRUGS (5)
  1. FOSAMAX [Suspect]
     Route: 048
  2. ALFAROL [Concomitant]
     Route: 048
  3. MERISLON [Concomitant]
     Route: 048
  4. METHYCOBAL [Concomitant]
     Route: 065
  5. LENDORMIN [Concomitant]
     Route: 048

REACTIONS (2)
  - HYPERPLASIA [None]
  - TRISMUS [None]
